FAERS Safety Report 24805040 (Version 1)
Quarter: 2025Q1

REPORT INFORMATION
  Report Type: Spontaneous
  Country: US (occurrence: US)
  Receive Date: 20250103
  Receipt Date: 20250103
  Transmission Date: 20250409
  Serious: Yes (Other)
  Sender: AMGEN
  Company Number: US-AMGEN-USASP2024255219

PATIENT
  Age: 67 Year
  Sex: Female

DRUGS (4)
  1. PREDNISONE [Suspect]
     Active Substance: PREDNISONE
     Indication: Laryngeal stenosis
     Route: 065
  2. KENALOG [Concomitant]
     Active Substance: TRIAMCINOLONE ACETONIDE
     Indication: Laryngeal stenosis
     Route: 065
     Dates: start: 2021
  3. AMOXICILLIN [Concomitant]
     Active Substance: AMOXICILLIN
     Indication: Laryngeal stenosis
  4. CLAVULANATE POTASSIUM [Concomitant]
     Active Substance: CLAVULANATE POTASSIUM
     Indication: Laryngeal stenosis

REACTIONS (2)
  - Laryngeal stenosis [Unknown]
  - Laryngitis fungal [Recovered/Resolved]
